FAERS Safety Report 7126466-4 (Version None)
Quarter: 2010Q4

REPORT INFORMATION
  Report Type: 
  Country: None (occurrence: None)
  Receive Date: 20101129
  Receipt Date: 20101116
  Transmission Date: 20110411
  Serious: Yes (Hospitalization)
  Sender: FDA-Public Use
  Company Number: PHHY2009TW60979

PATIENT
  Sex: Female

DRUGS (1)
  1. GLIVEC [Suspect]
     Indication: GASTROINTESTINAL STROMAL TUMOUR
     Dosage: 300 MG, UNK
     Route: 048
     Dates: start: 20071208

REACTIONS (4)
  - ABDOMINAL PAIN [None]
  - DECREASED APPETITE [None]
  - PAINFUL DEFAECATION [None]
  - RASH [None]
